FAERS Safety Report 15844049 (Version 1)
Quarter: 2019Q1

REPORT INFORMATION
  Report Type: Spontaneous
  Country: US (occurrence: US)
  Receive Date: 20190118
  Receipt Date: 20190118
  Transmission Date: 20190417
  Serious: Yes (Other)
  Sender: FDA-Public Use
  Company Number: US-TEVA-2019-US-999508

PATIENT

DRUGS (2)
  1. TEVADAPTOR SYRINGE ADAPTOR HF [Suspect]
     Active Substance: DEVICE
     Route: 065
  2. PACLITAXEL. [Suspect]
     Active Substance: PACLITAXEL
     Route: 065

REACTIONS (2)
  - Drug-device interaction [Unknown]
  - Adverse event [Unknown]
